FAERS Safety Report 6410523-1 (Version None)
Quarter: 2009Q4

REPORT INFORMATION
  Report Type: 
  Country: None (occurrence: None)
  Receive Date: 20091022
  Receipt Date: 20091012
  Transmission Date: 20100525
  Serious: Yes (Hospitalization)
  Sender: FDA-Public Use
  Company Number: FR-BRISTOL-MYERS SQUIBB COMPANY-14163760

PATIENT
  Age: 55 Year
  Sex: Male

DRUGS (2)
  1. SINEMET CR [Suspect]
     Indication: PARKINSON'S DISEASE
     Dosage: 1 DOSAGE FORM = 89 TABLETS.50/200(17.8G OF LEVODOPA,4.45G OF CARBIDOPA)
  2. ETHANOL [Suspect]

REACTIONS (13)
  - AMNESIA [None]
  - DELIRIUM [None]
  - DRY MOUTH [None]
  - HALLUCINATION, VISUAL [None]
  - HYPERHIDROSIS [None]
  - HYPOTENSION [None]
  - LOGORRHOEA [None]
  - MYDRIASIS [None]
  - OVERDOSE [None]
  - PSYCHOMOTOR HYPERACTIVITY [None]
  - RHABDOMYOLYSIS [None]
  - SINUS TACHYCARDIA [None]
  - URINARY RETENTION [None]
